FAERS Safety Report 5575001-0 (Version None)
Quarter: 2007Q4

REPORT INFORMATION
  Report Type: 
  Country: None (occurrence: None)
  Receive Date: 20071227
  Receipt Date: 20071218
  Transmission Date: 20080405
  Serious: Yes (Hospitalization)
  Sender: FDA-Public Use
  Company Number: B0501036A

PATIENT
  Age: 79 Year
  Sex: Female

DRUGS (8)
  1. AUGMENTIN '125' [Suspect]
     Dosage: 1G THREE TIMES PER DAY
     Route: 048
     Dates: start: 20071124, end: 20071128
  2. PREVISCAN [Suspect]
     Dosage: 10MG PER DAY
     Route: 048
     Dates: end: 20071130
  3. CIFLOX [Suspect]
     Dosage: 500MG TWICE PER DAY
     Route: 048
     Dates: start: 20071128, end: 20071202
  4. HEMIGOXINE [Concomitant]
     Route: 065
  5. KARDEGIC [Concomitant]
     Route: 065
  6. MOPRAL [Concomitant]
     Route: 065
  7. LASILIX [Concomitant]
     Route: 065
  8. NOVONORM [Concomitant]
     Route: 065

REACTIONS (6)
  - ANAEMIA [None]
  - DRUG INTERACTION [None]
  - HAEMATOMA [None]
  - HAEMATURIA [None]
  - INTERNATIONAL NORMALISED RATIO INCREASED [None]
  - PROTHROMBIN LEVEL DECREASED [None]
